FAERS Safety Report 4998017-1 (Version None)
Quarter: 2006Q2

REPORT INFORMATION
  Report Type: 
  Country: None (occurrence: None)
  Receive Date: 20060510
  Receipt Date: 20060423
  Transmission Date: 20061013
  Serious: Yes (Hospitalization)
  Sender: FDA-Public Use
  Company Number: 2006UW07256

PATIENT
  Age: 49 Year
  Sex: Female
  Weight: 117.9 kg

DRUGS (6)
  1. SEROQUEL [Suspect]
     Indication: BIPOLAR DISORDER
     Route: 048
     Dates: start: 20031001
  2. SEROQUEL [Suspect]
     Route: 048
     Dates: end: 20060401
  3. SYNTHROID [Concomitant]
     Route: 048
  4. LORAZEPAM [Concomitant]
     Route: 048
  5. ALTACE [Concomitant]
     Route: 048
  6. PROTONIX [Concomitant]
     Route: 048

REACTIONS (12)
  - ARTHRALGIA [None]
  - BLOOD GLUCOSE DECREASED [None]
  - CARDIAC MURMUR [None]
  - GASTRIC POLYPS [None]
  - HEPATOCELLULAR DAMAGE [None]
  - HYPOAESTHESIA [None]
  - LOWER GASTROINTESTINAL HAEMORRHAGE [None]
  - MUSCLE ATROPHY [None]
  - OEDEMA [None]
  - SOMNOLENCE [None]
  - SUICIDAL IDEATION [None]
  - WEIGHT INCREASED [None]
